FAERS Safety Report 23450648 (Version 1)
Quarter: 2024Q1

REPORT INFORMATION
  Report Type: Spontaneous
  Country: JP (occurrence: JP)
  Receive Date: 20240129
  Receipt Date: 20240129
  Transmission Date: 20240410
  Serious: Yes (Other)
  Sender: FDA-Public Use
  Company Number: JP-TAKEDA-2024TUS006582

PATIENT
  Age: 74 Year
  Sex: Female

DRUGS (2)
  1. ALUNBRIG [Suspect]
     Active Substance: BRIGATINIB
     Indication: Lung adenocarcinoma
     Dosage: 90 MILLIGRAM, QD
     Route: 065
     Dates: start: 202105
  2. ALUNBRIG [Suspect]
     Active Substance: BRIGATINIB
     Dosage: 180 MILLIGRAM, QD
     Route: 065

REACTIONS (2)
  - Lung adenocarcinoma [Unknown]
  - Pneumonitis [Unknown]
